FAERS Safety Report 13472825 (Version 5)
Quarter: 2020Q1

REPORT INFORMATION
  Report Type: Spontaneous
  Country: US (occurrence: US)
  Receive Date: 20170424
  Receipt Date: 20200302
  Transmission Date: 20200409
  Serious: Yes (Other)
  Sender: FDA-Public Use
  Company Number: US-PFIZER INC-2017173267

PATIENT
  Age: 48 Year
  Sex: Female
  Weight: 64.4 kg

DRUGS (16)
  1. ZITHROMAX [Concomitant]
     Active Substance: AZITHROMYCIN DIHYDRATE
     Dosage: 500 MG, UNK  (2 TABLETS ON THE FIRST DAY, THEN 1 TABLET DAILY FOR 4 DAYS ORALLY ONCE A DAY)
     Route: 048
  2. MICROGESTIN FE 1.5 [Concomitant]
     Dosage: 1 DF, 1X/DAY ([NORETHISTERONE ACETATE: 1.5 MG/ETHINYLESTRADIOL: 30 MG])
     Route: 048
  3. LYRICA [Suspect]
     Active Substance: PREGABALIN
     Indication: FIBROMYALGIA
     Dosage: 3 PILLS, DAILY
  4. ACETAMINOPHEN AND CODEINE [Concomitant]
     Active Substance: ACETAMINOPHEN\CODEINE PHOSPHATE
     Dosage: [CODEINE PHOSPHATE: 30 MG/ PARACETAMOL: 300 MG], EVERY 8 HOURS
  5. IBUPROFEN. [Concomitant]
     Active Substance: IBUPROFEN
     Dosage: 800 MG, AS NEEDED (TAKE 1 TABLET BY MOUTH EVERY DAY ORALLY ONE DAILY)
     Route: 048
  6. ACYCLOVIR. [Concomitant]
     Active Substance: ACYCLOVIR
     Dosage: 1 DF, 2X/DAY (400, TAKE 1 TABLET)
     Route: 048
  7. LYRICA [Suspect]
     Active Substance: PREGABALIN
     Dosage: 2 PILLS, DAILY
  8. LYRICA [Suspect]
     Active Substance: PREGABALIN
     Dosage: 75 MG, 3X/DAY
     Route: 048
  9. ZITHROMAX [Concomitant]
     Active Substance: AZITHROMYCIN DIHYDRATE
     Dosage: 250 MG, 1X/DAY (2 TABLETS ON THE FIRST DAY, THEN 1 TABLET DAILY FOR 4 DAYS ORALLY ONCE A DAY)
     Route: 048
  10. LYRICA [Suspect]
     Active Substance: PREGABALIN
     Dosage: 1 PILL, DAILY
  11. PROMETHAZINE AND CODEINE [Concomitant]
     Active Substance: CODEINE PHOSPHATE\PROMETHAZINE HYDROCHLORIDE
     Dosage: 5 ML, AS NEEDED ([PROMETHAZINE HYDROCHLORIDE 6.25MG/5ML/CODEINE PHOSPHATE 10MG/5ML], EVERY 12 HOUR)
     Route: 048
  12. MICROGESTIN FE 1.5 [Concomitant]
     Dosage: ([NORETHISTERONE ACETATE: 1.5 MG/ETHINYLESTRADIOL: 30 MG], 2 TABLETS ON THE FIRST DAY)
     Route: 048
  13. LIALDA [Concomitant]
     Active Substance: MESALAMINE
     Dosage: 2 DF, DAILY (1.2 DELAYED RELEASE TABLET TAKE 2 TABLETS)
     Route: 048
  14. MEDROL [Concomitant]
     Active Substance: METHYLPREDNISOLONE
     Indication: ARTHRALGIA
     Dosage: 4 MG, AS DIRECTED
     Route: 048
  15. ACETAMINOPHEN AND CODEINE [Concomitant]
     Active Substance: ACETAMINOPHEN\CODEINE PHOSPHATE
     Dosage: UNK UNK, AS NEEDED ([CODEINE PHOSPHATE: 30 MG/ PARACETAMOL: 300 MG], THREE TIMES A DAY)
     Route: 048
  16. LIALDA [Concomitant]
     Active Substance: MESALAMINE
     Dosage: 2.4 G, DAILY (2 TABLETS)
     Route: 048

REACTIONS (10)
  - Intentional product use issue [Unknown]
  - Nervousness [Unknown]
  - Dyspnoea [Unknown]
  - Loss of personal independence in daily activities [Unknown]
  - Pain [Unknown]
  - Chest pain [Unknown]
  - Immobile [Unknown]
  - Muscle spasms [Unknown]
  - Neck pain [Unknown]
  - Dysphagia [Unknown]
